FAERS Safety Report 12585137 (Version 5)
Quarter: 2024Q1

REPORT INFORMATION
  Report Type: Spontaneous
  Country: GB (occurrence: GB)
  Receive Date: 20160723
  Receipt Date: 20240103
  Transmission Date: 20240410
  Serious: Yes (Hospitalization, Other)
  Sender: FDA-Public Use
  Company Number: GB-ACCORD-042481

PATIENT
  Age: 57 Year
  Sex: Male

DRUGS (11)
  1. FLUOROURACIL [Suspect]
     Active Substance: FLUOROURACIL
     Indication: Product used for unknown indication
     Dosage: CYCLE 8 DAY 1
  2. IRINOTECAN HYDROCHLORIDE [Suspect]
     Active Substance: IRINOTECAN HYDROCHLORIDE
     Indication: Product used for unknown indication
  3. ONDANSETRON [Suspect]
     Active Substance: ONDANSETRON
     Indication: Product used for unknown indication
  4. TRAMADOL [Suspect]
     Active Substance: TRAMADOL\TRAMADOL HYDROCHLORIDE
     Indication: Product used for unknown indication
  5. APREPITANT [Suspect]
     Active Substance: APREPITANT
     Indication: Product used for unknown indication
  6. AVASTIN [Suspect]
     Active Substance: BEVACIZUMAB
     Indication: Product used for unknown indication
  7. DEXAMETHASONE [Suspect]
     Active Substance: DEXAMETHASONE
     Indication: Product used for unknown indication
  8. ATROPINE [Suspect]
     Active Substance: ATROPINE\ATROPINE SULFATE
     Indication: Product used for unknown indication
  9. LEUCOVORIN [Suspect]
     Active Substance: LEUCOVORIN\LEUCOVORIN CALCIUM
     Indication: Product used for unknown indication
  10. BEVACIZUMAB [Suspect]
     Active Substance: BEVACIZUMAB
     Indication: Product used for unknown indication
  11. LEUCOVORIN CALCIUM [Suspect]
     Active Substance: LEUCOVORIN CALCIUM
     Indication: Product used for unknown indication

REACTIONS (17)
  - Ill-defined disorder [Unknown]
  - Decreased appetite [Unknown]
  - Hypertension [Unknown]
  - Mouth ulceration [Unknown]
  - Emotional disorder [Unknown]
  - Fatigue [Unknown]
  - Pyrexia [Unknown]
  - Change of bowel habit [Unknown]
  - Rhinorrhoea [Unknown]
  - Oral pain [Unknown]
  - Stoma site pain [Unknown]
  - Diarrhoea [Unknown]
  - Muscular weakness [Unknown]
  - Arthropathy [Unknown]
  - Pain [Unknown]
  - Gait disturbance [Unknown]
  - Alopecia [Unknown]
